FAERS Safety Report 6411514-7 (Version None)
Quarter: 2009Q4

REPORT INFORMATION
  Report Type: 
  Country: None (occurrence: None)
  Receive Date: 20091023
  Receipt Date: 20091012
  Transmission Date: 20100525
  Serious: Yes (Hospitalization)
  Sender: FDA-Public Use
  Company Number: JP-PFIZER INC-2009258886

PATIENT
  Age: 54 Year

DRUGS (3)
  1. NIFEDIPINE [Suspect]
     Indication: HYPERTENSION
     Dosage: UNK
     Route: 048
     Dates: start: 20060218, end: 20070401
  2. BAKUMONDOUTO [Concomitant]
  3. ETIZOLAM [Concomitant]

REACTIONS (2)
  - PNEUMONIA [None]
  - SJOGREN'S SYNDROME [None]
